FAERS Safety Report 9995987 (Version 1)
Quarter: 2014Q1

REPORT INFORMATION
  Report Type: Spontaneous
  Country: GB (occurrence: GB)
  Receive Date: 20140311
  Receipt Date: 20140311
  Transmission Date: 20141002
  Serious: Yes (Disabling)
  Sender: FDA-Public Use
  Company Number: GB-PFIZER INC-2014064833

PATIENT
  Age: 77 Year
  Sex: Female

DRUGS (3)
  1. VFEND [Suspect]
     Dosage: 250 MG, 2X/DAY
     Dates: start: 2009
  2. VFEND [Suspect]
     Dosage: 200 MG, 2X/DAY
  3. BENDROFLUMETHIAZIDE [Concomitant]
     Dosage: 2 MG 1X/DAY (EVERY MORNING)

REACTIONS (4)
  - Fluorosis [Unknown]
  - Musculoskeletal chest pain [Unknown]
  - Electrolyte imbalance [Unknown]
  - Blood alkaline phosphatase increased [Unknown]
